FAERS Safety Report 12558964 (Version 1)
Quarter: 2016Q3

REPORT INFORMATION
  Report Type: Spontaneous
  Country: DE (occurrence: DE)
  Receive Date: 20160715
  Receipt Date: 20160715
  Transmission Date: 20161109
  Serious: Yes (Death)
  Sender: FDA-Public Use
  Company Number: DE-009507513-1607DEU005689

PATIENT
  Age: 56 Year
  Sex: Female

DRUGS (5)
  1. RIBAVIRIN. [Suspect]
     Active Substance: RIBAVIRIN
     Indication: CHRONIC HEPATITIS C
     Dosage: 200 MG, 3-0-2
     Route: 048
     Dates: start: 20150706
  2. HARVONI [Suspect]
     Active Substance: LEDIPASVIR\SOFOSBUVIR
     Indication: CHRONIC HEPATITIS C
     Dosage: 1 DF, 1-0-0
     Route: 048
     Dates: start: 20150706
  3. PANTOPRAZOLE [Concomitant]
     Active Substance: PANTOPRAZOLE SODIUM
     Dosage: 40 MG, 1-0-1
     Route: 048
  4. TORSEMIDE. [Concomitant]
     Active Substance: TORSEMIDE
     Indication: ASCITES
     Dosage: CHANGING DOSE TO 10-2- MG
     Route: 048
  5. PROPRANOLOL HYDROCHLORIDE. [Concomitant]
     Active Substance: PROPRANOLOL HYDROCHLORIDE
     Dosage: 10 MG, 1-1-2
     Route: 048

REACTIONS (2)
  - Haemorrhage intracranial [Fatal]
  - Carotid artery stenosis [Fatal]

NARRATIVE: CASE EVENT DATE: 20151109
